FAERS Safety Report 5443283-1 (Version None)
Quarter: 2007Q3

REPORT INFORMATION
  Report Type: 
  Country: None (occurrence: None)
  Receive Date: 20070830
  Receipt Date: 20070820
  Transmission Date: 20080115
  Serious: Yes (Hospitalization)
  Sender: FDA-Public Use
  Company Number: 2007-162907-NL

PATIENT
  Age: 65 Year
  Sex: Male

DRUGS (1)
  1. DANAPAROID SODIUM [Suspect]
     Indication: HAEMORRHAGIC STROKE
     Dosage: 750 IU SUBCUTANEOUS
     Route: 058
     Dates: start: 20070515, end: 20070614

REACTIONS (1)
  - HEPATITIS ACUTE [None]
